FAERS Safety Report 7134847-8 (Version None)
Quarter: 2010Q4

REPORT INFORMATION
  Report Type: 
  Country: None (occurrence: None)
  Receive Date: 20101130
  Receipt Date: 20101130
  Transmission Date: 20110411
  Serious: Yes (Other)
  Sender: FDA-Public Use
  Company Number: None

PATIENT
  Age: 64 Year
  Sex: Female
  Weight: 83.9154 kg

DRUGS (2)
  1. TRAMADOL HCL [Suspect]
     Indication: ARTHRALGIA
     Dosage: 1 OR 2  3X DAILY PO
     Route: 048
     Dates: start: 20100105, end: 20100822
  2. TRAMADOL HCL [Suspect]
     Indication: OSTEOARTHRITIS
     Dosage: 1 OR 2  3X DAILY PO
     Route: 048
     Dates: start: 20100105, end: 20100822

REACTIONS (3)
  - BLOOD URINE PRESENT [None]
  - CYSTITIS [None]
  - POLLAKIURIA [None]
